FAERS Safety Report 25792815 (Version 1)
Quarter: 2025Q3

REPORT INFORMATION
  Report Type: Spontaneous
  Country: US (occurrence: US)
  Receive Date: 20250911
  Receipt Date: 20250911
  Transmission Date: 20251021
  Serious: Yes (Hospitalization, Other)
  Sender: AMGEN
  Company Number: US-AMGEN-USASP2025176862

PATIENT
  Age: 47 Year
  Sex: Female

DRUGS (9)
  1. PREDNISONE [Suspect]
     Active Substance: PREDNISONE
     Indication: Immunosuppressant drug therapy
     Route: 065
  2. THYMOGLOBULIN [Concomitant]
     Active Substance: LAPINE T-LYMPHOCYTE IMMUNE GLOBULIN
     Indication: Immunosuppressant drug therapy
     Route: 065
  3. TACROLIMUS [Concomitant]
     Active Substance: TACROLIMUS
     Indication: Immunosuppressant drug therapy
     Route: 065
  4. MYCOPHENOLATE SODIUM [Concomitant]
     Active Substance: MYCOPHENOLATE SODIUM
     Indication: Immunosuppressant drug therapy
     Route: 065
  5. SULFAMETHOXAZOLE\TRIMETHOPRIM [Concomitant]
     Active Substance: SULFAMETHOXAZOLE\TRIMETHOPRIM
     Indication: Prophylaxis
     Route: 065
  6. VALGANCICLOVIR [Concomitant]
     Active Substance: VALGANCICLOVIR
     Indication: Antiviral prophylaxis
     Route: 065
  7. VANCOMYCIN [Concomitant]
     Active Substance: VANCOMYCIN
     Indication: Chorioretinitis
     Route: 065
  8. VANCOMYCIN [Concomitant]
     Active Substance: VANCOMYCIN
  9. CEFEPIME [Concomitant]
     Active Substance: CEFEPIME HYDROCHLORIDE
     Route: 065

REACTIONS (13)
  - Endophthalmitis [Recovering/Resolving]
  - Mycoplasma infection [Recovering/Resolving]
  - Endocarditis [Recovering/Resolving]
  - Atrial fibrillation [Recovering/Resolving]
  - Cerebral infarction [Recovering/Resolving]
  - Septic embolus [Recovering/Resolving]
  - Central vision loss [Recovering/Resolving]
  - Chorioretinitis [Recovering/Resolving]
  - Atrioventricular block complete [Recovering/Resolving]
  - Post procedural drainage [Recovering/Resolving]
  - Cardiac murmur [Recovering/Resolving]
  - Retinal scar [Recovering/Resolving]
  - Impaired healing [Recovered/Resolved]
